FAERS Safety Report 8034254-X (Version None)
Quarter: 2012Q1

REPORT INFORMATION
  Report Type: 
  Country: None (occurrence: None)
  Receive Date: 20120110
  Receipt Date: 20120102
  Transmission Date: 20120608
  Serious: Yes (Hospitalization, Other)
  Sender: FDA-Public Use
  Company Number: PHHY2012FR001100

PATIENT
  Age: 62 Year
  Sex: Male

DRUGS (7)
  1. MYCOPHENOLATE MOFETIL (CELLCEPT) [Suspect]
     Dosage: 500 MG, UNK
     Route: 048
     Dates: start: 20110201
  2. DELURSAN [Concomitant]
     Dosage: UNK UKN, UNK
  3. NEORAL [Suspect]
     Dosage: 100 MG, UNK
     Dates: start: 20110201
  4. PANTOPRAZOLE [Concomitant]
     Dosage: 40 MG, DAILY
  5. FERROUS SULFATE TAB [Concomitant]
     Dosage: 2 DF, DAILY
  6. PREDNISOLONE [Suspect]
     Dosage: 10 MG, DAILY
     Dates: start: 20110201
  7. SPECIAFOLDINE [Concomitant]
     Dosage: 2 DF, DAILY

REACTIONS (12)
  - HYPOTENSION [None]
  - PROGRESSIVE MULTIFOCAL LEUKOENCEPHALOPATHY [None]
  - CEREBELLAR SYNDROME [None]
  - DECREASED VIBRATORY SENSE [None]
  - HYPOACUSIS [None]
  - NYSTAGMUS [None]
  - HYPOTONIA [None]
  - BRAIN OEDEMA [None]
  - NEUROLOGICAL DECOMPENSATION [None]
  - JC VIRUS INFECTION [None]
  - PRESYNCOPE [None]
  - MALAISE [None]
